FAERS Safety Report 12413316 (Version 2)
Quarter: 2016Q3

REPORT INFORMATION
  Report Type: Spontaneous
  Country: JP (occurrence: JP)
  Receive Date: 20160527
  Receipt Date: 20160701
  Transmission Date: 20161109
  Serious: Yes (Other)
  Sender: FDA-Public Use
  Company Number: JP-SUNOVION-2016SUN001313

PATIENT
  Sex: Male

DRUGS (4)
  1. LUNESTA [Suspect]
     Active Substance: ESZOPICLONE
     Route: 048
  2. ZYPREXA [Concomitant]
     Active Substance: OLANZAPINE
     Route: 048
  3. DEPAS [Concomitant]
     Active Substance: ETIZOLAM
     Route: 065
  4. ZYPREXA [Concomitant]
     Active Substance: OLANZAPINE
     Route: 048

REACTIONS (1)
  - Delirium [Unknown]
